FAERS Safety Report 10192825 (Version 2)
Quarter: 2014Q2

REPORT INFORMATION
  Report Type: Spontaneous
  Country: US (occurrence: US)
  Receive Date: 20140523
  Receipt Date: 20140523
  Transmission Date: 20141212
  Serious: Yes (Other)
  Sender: FDA-Public Use
  Company Number: PHHY2014US042021

PATIENT
  Age: 72 Year
  Sex: Male

DRUGS (26)
  1. BACLOFEN INTRATHECAL [Suspect]
     Indication: MUSCLE SPASTICITY
     Dosage: 238 UG, DAY
     Route: 037
     Dates: start: 20101028
  2. BACLOFEN INTRATHECAL [Suspect]
     Dosage: 230.4 UG, PER DAY
     Route: 037
  3. BACLOFEN [Suspect]
     Dosage: 10 MG, PRN
     Route: 048
  4. IPRATROPIUM BROMIDE/ALBUTEROL SULFATE [Suspect]
     Dosage: (0.5MG/3ML), QID
     Route: 055
  5. TERAZOSIN HCL [Suspect]
     Dosage: 5 MG, AT BEDTIME
     Route: 048
  6. CLONIDINE [Suspect]
     Dosage: 114.4 UG/DAY
     Route: 037
  7. CLONIDINE [Suspect]
     Dosage: 110.42  UG/DAY
     Route: 037
  8. BUPIVACAINE [Suspect]
     Dosage: 4.7 MG/DAY
     Route: 037
  9. BUPIVACAINE [Suspect]
     Dosage: 4.601 MG/DAY
     Route: 037
  10. TYLENOL [Suspect]
     Dosage: 325 MG, Q6H
     Route: 048
  11. DULCOLAX [Suspect]
     Dosage: 10 MG, PRN
  12. VACCINIUM MACROCARPON FRUIT JUICE [Suspect]
     Dosage: 400 MG, BID
     Route: 048
  13. BENADRYL [Suspect]
     Dosage: 25 MG, PRN (AS BED TIME)
     Route: 048
  14. DEPAKENE [Suspect]
     Dosage: 250 MG, BID
     Route: 048
  15. COLACE [Suspect]
     Dosage: 100 MG, BID
     Route: 048
  16. ZETIA [Suspect]
     Dosage: 10 MG, AT BED TIME
     Route: 048
  17. ADVAIR [Suspect]
     Dosage: 1 DF, PRN (250-50 DISKUS 1 EACH INHALATION AT BEDTIME)
     Route: 055
  18. LASIX [Suspect]
     Dosage: 40 MG, DAILY
     Route: 048
  19. ADVIL//IBUPROFEN [Suspect]
     Dosage: 200 MG, TID
     Route: 048
  20. KLOR-CON [Suspect]
     Dosage: 20 MEQ, UNK
     Route: 048
  21. PRILOSEC [Suspect]
     Dosage: 20 MG, DAILY
     Route: 048
  22. VITAMIN D3 [Suspect]
     Dosage: 50000 UKN, QW
  23. MIRALAX [Suspect]
     Dosage: 17 GM POWDER PACK ORAL DAILY
     Route: 048
  24. PHENERGAN [Suspect]
     Dosage: 25 MG/1 ML AMPULE INJECTION , PRN
     Route: 065
  25. PROTONIX [Suspect]
     Dosage: 20 MG, DAILY
     Route: 048
  26. SEROQUEL [Suspect]
     Dosage: 25 MG AT BEDTIME
     Route: 048

REACTIONS (4)
  - Pain [Unknown]
  - Somnolence [Unknown]
  - Muscle spasticity [Unknown]
  - Overdose [Unknown]
